FAERS Safety Report 6342185-6 (Version None)
Quarter: 2009Q3

REPORT INFORMATION
  Report Type: 
  Country: None (occurrence: None)
  Receive Date: 20090903
  Receipt Date: 20090903
  Transmission Date: 20100115
  Serious: Yes (Life-Threatening, Other)
  Sender: FDA-Public Use
  Company Number: None

PATIENT
  Sex: Female
  Weight: 63.5036 kg

DRUGS (1)
  1. ACTONEL [Suspect]
     Indication: OSTEOPOROSIS
     Dosage: 35 MG ONCE A WEEK PO
     Route: 048
     Dates: start: 20050501, end: 20061001

REACTIONS (18)
  - AORTIC VALVE CALCIFICATION [None]
  - ARRHYTHMIA [None]
  - BONE DISORDER [None]
  - BONE FORMATION INCREASED [None]
  - CALCIFICATION OF MUSCLE [None]
  - CARDIAC MURMUR [None]
  - COUGH [None]
  - DEFORMITY [None]
  - DYSPHONIA [None]
  - MITRAL VALVE CALCIFICATION [None]
  - MUSCULOSKELETAL PAIN [None]
  - NODULE ON EXTREMITY [None]
  - PAIN [None]
  - PAIN IN EXTREMITY [None]
  - PULMONARY VALVE CALCIFICATION [None]
  - SINUS DISORDER [None]
  - SINUSITIS [None]
  - SKIN DISORDER [None]
